FAERS Safety Report 8584651-9 (Version None)
Quarter: 2012Q3

REPORT INFORMATION
  Report Type: 
  Country: None (occurrence: None)
  Receive Date: 20120810
  Receipt Date: 20120801
  Transmission Date: 20120928
  Serious: Yes (Hospitalization)
  Sender: FDA-Public Use
  Company Number: JP-BAYER-2012-068707

PATIENT
  Age: 68 Year
  Sex: Male
  Weight: 57.5 kg

DRUGS (10)
  1. JANUVIA [Concomitant]
     Dosage: DAILY DOSE 50 MG
     Route: 048
     Dates: end: 20120702
  2. MIGLITOL [Concomitant]
     Dosage: DAILY DOSE 100 MG
     Route: 048
     Dates: end: 20120702
  3. LANTUS [Concomitant]
     Dosage: DAILY DOSE 6 U
     Dates: start: 20120712, end: 20120712
  4. BARACLUDE [Concomitant]
     Dosage: DAILY DOSE .5 MG
     Route: 048
  5. OMEPRAZOLE [Concomitant]
     Dosage: DAILY DOSE 10 MG
     Route: 048
  6. LANTUS [Concomitant]
     Dosage: DAILY DOSE 6 U
     Dates: start: 20120708, end: 20120708
  7. NOVORAPID [Concomitant]
     Dosage: DAILY DOSE 2 U
     Dates: start: 20120708, end: 20120708
  8. NOVORAPID [Concomitant]
     Dosage: DAILY DOSE 2 U
     Dates: start: 20120712, end: 20120712
  9. NEXAVAR [Suspect]
     Indication: HEPATIC NEOPLASM MALIGNANT
     Dosage: 400 MG, QD
     Route: 048
     Dates: start: 20120628
  10. METFORMIN HYDROCHLORIDE [Concomitant]
     Dosage: DAILY DOSE 500 MG
     Route: 048
     Dates: end: 20120702

REACTIONS (8)
  - HEPATIC ENCEPHALOPATHY [None]
  - VISUAL IMPAIRMENT [None]
  - GAMMA-GLUTAMYLTRANSFERASE INCREASED [None]
  - GRIP STRENGTH DECREASED [None]
  - BLOOD ALKALINE PHOSPHATASE INCREASED [None]
  - ASPARTATE AMINOTRANSFERASE INCREASED [None]
  - DELIRIUM [None]
  - ALANINE AMINOTRANSFERASE INCREASED [None]
